FAERS Safety Report 9774167 (Version 1)
Quarter: 2013Q4

REPORT INFORMATION
  Report Type: Spontaneous
  Country: US (occurrence: US)
  Receive Date: 20131220
  Receipt Date: 20131220
  Transmission Date: 20140711
  Serious: Yes (Death)
  Sender: FDA-Public Use
  Company Number: US-BEH-2013039654

PATIENT
  Age: 65 Year
  Sex: Male

DRUGS (2)
  1. INTRAVENOUS IMMUNOGLOBULIN [Suspect]
     Indication: WEST NILE VIRAL INFECTION
     Route: 042
  2. INTERFERON ALPHA-2B [Concomitant]
     Indication: WEST NILE VIRAL INFECTION
     Route: 058

REACTIONS (1)
  - Drug ineffective for unapproved indication [Fatal]
